FAERS Safety Report 21769729 (Version 1)
Quarter: 2022Q4

REPORT INFORMATION
  Report Type: Spontaneous
  Country: US (occurrence: US)
  Receive Date: 20221223
  Receipt Date: 20221223
  Transmission Date: 20230112
  Serious: Yes (Death)
  Sender: FDA-Public Use
  Company Number: US-SPECGX-T202202481

PATIENT
  Age: 22 Year
  Sex: Male

DRUGS (1)
  1. FENTANYL CITRATE [Suspect]
     Active Substance: FENTANYL CITRATE
     Indication: Product used for unknown indication
     Dosage: UNK
     Route: 065

REACTIONS (6)
  - Encephalitis [Fatal]
  - Hydrocephalus [Fatal]
  - Hernia [Fatal]
  - Coma [Fatal]
  - Respiratory failure [Fatal]
  - Overdose [Fatal]
